FAERS Safety Report 9012159 (Version 1)
Quarter: 2013Q1

REPORT INFORMATION
  Report Type: Spontaneous
  Country: US (occurrence: US)
  Receive Date: 20130114
  Receipt Date: 20130114
  Transmission Date: 20140127
  Serious: No
  Sender: FDA-Public Use
  Company Number: US-PFIZER INC-2013013280

PATIENT
  Age: 79 Year
  Sex: Male
  Weight: 117.46 kg

DRUGS (3)
  1. ADVIL [Suspect]
     Indication: PAIN
     Dosage: 400 MG, THREE TIMES A DAY
     Route: 048
  2. ADVIL [Suspect]
     Dosage: 200 MG 3 TABLETS IN MORNING, 2 TABLETS IN AFTERNOON AND 2 TABLETS AT NIGHT
     Route: 048
     Dates: start: 2012
  3. ATACAND [Concomitant]
     Indication: HYPERTENSION
     Dosage: 32 MG, DAILY

REACTIONS (2)
  - Drug ineffective [Unknown]
  - Incorrect dose administered [Unknown]
